FAERS Safety Report 22596684 (Version 2)
Quarter: 2023Q2

REPORT INFORMATION
  Report Type: Report from Study
  Country: KR (occurrence: KR)
  Receive Date: 20230613
  Receipt Date: 20230629
  Transmission Date: 20230721
  Serious: Yes (Hospitalization)
  Sender: FDA-Public Use
  Company Number: KR-AstraZeneca-2021A499784

PATIENT
  Age: 50 Year
  Sex: Female

DRUGS (47)
  1. FAM-TRASTUZUMAB DERUXTECAN-NXKI [Suspect]
     Active Substance: FAM-TRASTUZUMAB DERUXTECAN-NXKI
     Indication: Ovarian cancer
     Dosage: 5.4 MG/KG, ONCE EVERY 3 WK
     Route: 042
     Dates: start: 20210528, end: 20210528
  2. FAM-TRASTUZUMAB DERUXTECAN-NXKI [Suspect]
     Active Substance: FAM-TRASTUZUMAB DERUXTECAN-NXKI
     Dosage: 5.4 MG/KG, ONCE EVERY 3 WK
     Route: 042
     Dates: start: 20210624, end: 20210624
  3. AKYNZEO (NETUPITANT\PALONOSETRON) [Concomitant]
     Active Substance: NETUPITANT\PALONOSETRON
     Indication: Premedication
     Dosage: 1 DF, TOTAL
     Route: 048
     Dates: start: 20210528, end: 20210528
  4. MAGNESIUM OXIDE [Concomitant]
     Active Substance: MAGNESIUM OXIDE
     Indication: Constipation
     Dosage: 250 MG, ONCE EVERY 8HR
     Route: 048
     Dates: start: 20210528, end: 20210602
  5. CODEINE [Concomitant]
     Active Substance: CODEINE
     Indication: Cough
     Dosage: 20 MG, ONCE EVERY 8HR
     Route: 048
     Dates: start: 20210524, end: 20210629
  6. DULCOLAX NOS [Concomitant]
     Active Substance: BISACODYL OR DOCUSATE SODIUM
     Indication: Constipation
     Dosage: 1.0 DUCOLAX SUPPO, AS NEEDED
     Route: 054
     Dates: start: 20210529, end: 20210529
  7. LACTULOSE [Concomitant]
     Active Substance: LACTULOSE
     Indication: Constipation
     Dosage: 15 ML, ONCE EVERY 8HR
     Route: 048
     Dates: start: 20210603, end: 20210609
  8. FERINJECT [Concomitant]
     Active Substance: FERRIC CARBOXYMALTOSE
     Indication: Anaemia
     Dosage: 500 MG, QD
     Route: 042
     Dates: start: 20210525, end: 20210526
  9. FERROUS SULFATE;PROTEASE NOS [Concomitant]
     Indication: Anaemia
     Dosage: 512 MG, QD
     Route: 048
     Dates: start: 20210527, end: 20210606
  10. FURTMAN [Concomitant]
     Indication: Decreased appetite
     Dosage: 0.2 ML, TOTAL
     Route: 042
     Dates: start: 20210524, end: 20210527
  11. GASTER [Concomitant]
     Active Substance: FAMOTIDINE
     Indication: Prophylaxis of nausea and vomiting
     Dosage: 20 MG, ONCE EVERY 12HR
     Route: 048
     Dates: start: 20210524, end: 20210626
  12. MAGNESIUM OXIDE [Concomitant]
     Active Substance: MAGNESIUM OXIDE
     Indication: Constipation
     Dosage: 250 MG, ONCE EVERY 8HR
     Route: 048
     Dates: start: 20210528, end: 20210602
  13. AMINO ACIDS\DEXTROSE\ELECTROLYTES NOS\SOYBEAN OIL\VITAMINS [Concomitant]
     Active Substance: AMINO ACIDS\DEXTROSE\ELECTROLYTES NOS\SOYBEAN OIL\VITAMINS
     Indication: Decreased appetite
     Dosage: 1085 ML, QD
     Route: 042
     Dates: start: 20210524, end: 20210527
  14. FERINJECT [Concomitant]
     Active Substance: FERRIC CARBOXYMALTOSE
     Indication: Anaemia
     Dosage: 500 MG, QD
     Route: 058
     Dates: start: 20210525, end: 20210526
  15. AMINO ACIDS\DEXTROSE\ELECTROLYTES NOS\SOYBEAN OIL\VITAMINS [Concomitant]
     Active Substance: AMINO ACIDS\DEXTROSE\ELECTROLYTES NOS\SOYBEAN OIL\VITAMINS
     Indication: Decreased appetite
     Dosage: 1085.0 40CC/H DAILY
     Route: 042
     Dates: start: 20210524, end: 20210527
  16. FURTMAN [Concomitant]
     Indication: Decreased appetite
     Dosage: 1.0 MIX IV DAILY
     Route: 042
     Dates: start: 20210524, end: 20210527
  17. TAMIPOOL [ASCORBIC ACID;BIOTIN;CYANOCOBALAMIN;DEXPANTHENOL;ERGOCALCIFE [Concomitant]
     Indication: Decreased appetite
     Dosage: 1.0 MIX IV DAILY
     Route: 042
     Dates: start: 20210524, end: 20210527
  18. BEAROBAN [Concomitant]
     Indication: Dermatitis
     Dosage: 1.0 ONIT DAILY
     Route: 061
     Dates: start: 20210515, end: 20210529
  19. GANAKHAN [Concomitant]
     Indication: Nausea
     Dosage: 1 DF, ONCE EVERY 8HR
     Route: 048
     Dates: start: 20210510
  20. NORZYME [Concomitant]
     Indication: Nausea
     Dosage: 1 DF, ONCE EVERY 8HR
     Route: 048
     Dates: start: 20210510, end: 20210629
  21. CODEINE [Concomitant]
     Active Substance: CODEINE
     Indication: Cough
     Dosage: 20 MG, ONCE EVERY 8HR
     Route: 048
     Dates: start: 20210524, end: 20210629
  22. MEGACE [Concomitant]
     Active Substance: MEGESTROL ACETATE
     Indication: Decreased appetite
     Dosage: 1.0 PACK DAILY
     Route: 048
     Dates: start: 20210525, end: 20210619
  23. MAGNESIUM OXIDE [Concomitant]
     Active Substance: MAGNESIUM OXIDE
     Indication: Constipation
     Dosage: 1 DF, ONCE EVERY 8HR
     Route: 048
     Dates: start: 20210603
  24. TRAMADOL HYDROCHLORIDE [Concomitant]
     Active Substance: TRAMADOL HYDROCHLORIDE
     Indication: Abdominal pain
     Dosage: 50 MG
     Route: 065
     Dates: start: 20210603, end: 20210603
  25. ALBUMIN HUMAN [Concomitant]
     Active Substance: ALBUMIN HUMAN
     Indication: Hypoalbuminaemia
     Dosage: 100 ML
     Route: 065
     Dates: start: 20210607, end: 20210608
  26. GLYCERINE ENEMA [Concomitant]
     Indication: Constipation
     Dosage: 30 ML
     Route: 065
     Dates: start: 20210604, end: 20210604
  27. K CONTIN [Concomitant]
     Indication: Prophylaxis
     Dosage: 600 MG
     Route: 065
     Dates: start: 20210607, end: 20210608
  28. KETOCONAZOLE [Concomitant]
     Active Substance: KETOCONAZOLE
     Indication: Prophylaxis
     Dosage: 1 DF
     Route: 065
     Dates: start: 20210607
  29. LASIX [Concomitant]
     Active Substance: FUROSEMIDE
     Indication: Hypervolaemia
     Dosage: 20 MG
     Route: 065
     Dates: start: 20210607, end: 20210608
  30. CALCIUM POLYCARBOPHIL [Concomitant]
     Active Substance: CALCIUM POLYCARBOPHIL
     Indication: Constipation
     Dosage: 625 MG
     Route: 065
     Dates: start: 20210604, end: 20210709
  31. TAMIPOOL [VITAMINS NOS] [Concomitant]
     Indication: Vitamin supplementation
     Dosage: 5 MG
     Route: 065
     Dates: start: 20210605, end: 20210611
  32. TIROPA [TIROPRAMIDE HYDROCHLORIDE] [Concomitant]
     Indication: Abdominal pain
     Dosage: 100 MG
     Route: 065
     Dates: start: 20210607, end: 20210612
  33. TRAMADOL HYDROCHLORIDE [Concomitant]
     Active Substance: TRAMADOL HYDROCHLORIDE
     Indication: Abdominal pain
     Dosage: 50 MG
     Route: 065
     Dates: start: 20210603, end: 20210603
  34. AMINO ACIDS\DEXTROSE\ELECTROLYTES NOS\SOYBEAN OIL\VITAMINS [Concomitant]
     Active Substance: AMINO ACIDS\DEXTROSE\ELECTROLYTES NOS\SOYBEAN OIL\VITAMINS
     Indication: Decreased appetite
     Dosage: 1450 ML
     Route: 065
     Dates: start: 20210605, end: 20210611
  35. RBC [SACCHARATED IRON OXIDE] [Concomitant]
     Indication: Anaemia
     Dosage: 400 ML
     Route: 065
     Dates: start: 20210607, end: 20210607
  36. MEDILAC DS [Concomitant]
     Indication: Constipation
     Dosage: 1 DF
     Route: 065
     Dates: start: 20210604, end: 20210629
  37. CALCIUM POLYCARBOPHIL [Concomitant]
     Active Substance: CALCIUM POLYCARBOPHIL
     Indication: Constipation
     Dosage: 1 DF
     Route: 065
     Dates: start: 20210604, end: 20210609
  38. CODEINE [Concomitant]
     Active Substance: CODEINE
     Indication: Abdominal pain
     Dosage: 20 MG
     Route: 065
     Dates: start: 20210604, end: 20210612
  39. NORZYME [Concomitant]
     Indication: Prophylaxis of nausea and vomiting
     Dosage: 457.7 MG
     Route: 065
     Dates: start: 20210510, end: 20210629
  40. GANAKHAN [Concomitant]
     Indication: Prophylaxis
     Dosage: 50 MG
     Route: 065
     Dates: start: 20210510, end: 20210629
  41. MEGACE F [Concomitant]
     Indication: Prophylaxis of nausea and vomiting
     Dosage: 5 ML
     Route: 065
     Dates: start: 20210525, end: 20210529
  42. MEGACE F [Concomitant]
     Dosage: 5 ML
     Route: 065
     Dates: start: 20210528, end: 20210609
  43. MEGACE F [Concomitant]
     Dosage: 5 ML
     Route: 065
     Dates: start: 20210604, end: 20210609
  44. PHENYLEPHRINE HYDROCHLORIDE\TROPICAMIDE [Concomitant]
     Active Substance: PHENYLEPHRINE HYDROCHLORIDE\TROPICAMIDE
     Indication: Mydriasis
     Dosage: 10 ML
     Route: 065
     Dates: start: 20210527, end: 20210527
  45. PENIRAMIN [Concomitant]
     Indication: Premedication
     Dosage: 4 MG
     Route: 065
     Dates: start: 20210607, end: 20210607
  46. NETUPITANT [Concomitant]
     Active Substance: NETUPITANT
     Indication: Nausea
     Dosage: 300 MG
     Route: 065
     Dates: start: 20210528, end: 20210528
  47. ITOPRIDE HYDROCHLORIDE [Concomitant]
     Active Substance: ITOPRIDE HYDROCHLORIDE
     Indication: Dyspepsia
     Dosage: 50 MG
     Route: 065
     Dates: start: 20210510, end: 20210629

REACTIONS (2)
  - Neutrophil count decreased [Recovered/Resolved]
  - Abdominal pain [Not Recovered/Not Resolved]

NARRATIVE: CASE EVENT DATE: 20210603
